FAERS Safety Report 15580662 (Version 3)
Quarter: 2021Q3

REPORT INFORMATION
  Report Type: Spontaneous
  Country: FR (occurrence: FR)
  Receive Date: 20181102
  Receipt Date: 20210730
  Transmission Date: 20211014
  Serious: Yes (Death, Life-Threatening, Hospitalization, Other)
  Sender: FDA-Public Use
  Company Number: FR-MYLANLABS-2018M1083399

PATIENT
  Age: 87 Year
  Sex: Female
  Weight: 85 kg

DRUGS (8)
  1. COUMADIN [Interacting]
     Active Substance: WARFARIN SODIUM
     Dosage: 2 MILLIGRAM, QD (2 MG, BID)
     Route: 048
     Dates: start: 20130306, end: 20130314
  2. AMLOR [Concomitant]
     Active Substance: AMLODIPINE BESYLATE
     Dosage: 10 MILLIGRAM
     Route: 048
  3. AMLOR [Concomitant]
     Active Substance: AMLODIPINE BESYLATE
     Indication: PRODUCT USED FOR UNKNOWN INDICATION
     Dosage: UNK
     Route: 048
  4. ARIXTRA [Suspect]
     Active Substance: FONDAPARINUX SODIUM
     Indication: ATRIAL FIBRILLATION
     Dosage: 7.5 MG, QD 7.5/0.6 MG/ML DAILY
     Route: 058
     Dates: start: 20130306, end: 20130314
  5. COUMADIN [Interacting]
     Active Substance: WARFARIN SODIUM
     Dosage: 2 X 2MG DAILY
     Route: 048
     Dates: start: 20130313, end: 20130314
  6. KARDEGIC [Interacting]
     Active Substance: ASPIRIN DL-LYSINE
     Indication: PRODUCT USED FOR UNKNOWN INDICATION
     Dosage: 75 MILLIGRAM, QD (7.5 MG, 1D)
     Route: 048
     Dates: start: 20130306, end: 20130313
  7. ARIXTRA [Interacting]
     Active Substance: FONDAPARINUX SODIUM
     Indication: ARRHYTHMIA
     Dosage: UNK
  8. COUMADIN [Interacting]
     Active Substance: WARFARIN SODIUM
     Indication: ATRIAL FIBRILLATION
     Dosage: 1.5X 2MG DAILY
     Route: 048
     Dates: start: 20130311, end: 20130313

REACTIONS (22)
  - Haematoma muscle [Recovering/Resolving]
  - Pallor [Unknown]
  - Disorientation [Unknown]
  - Haemorrhage [Not Recovered/Not Resolved]
  - Intestinal obstruction [Recovering/Resolving]
  - Off label use [Unknown]
  - Pulse absent [Unknown]
  - Haemodynamic instability [Unknown]
  - Aggression [Unknown]
  - Shock haemorrhagic [Recovered/Resolved]
  - Renal failure [Fatal]
  - Anaemia [Recovered/Resolved]
  - Anuria [Unknown]
  - Tachycardia [Unknown]
  - Labelled drug-drug interaction medication error [Unknown]
  - General physical health deterioration [Fatal]
  - Hypotension [Unknown]
  - Lymphoedema [Unknown]
  - Confusional state [Unknown]
  - Flatulence [Unknown]
  - Hypovolaemic shock [Not Recovered/Not Resolved]
  - Haematoma [Recovering/Resolving]

NARRATIVE: CASE EVENT DATE: 20130313
